FAERS Safety Report 12898188 (Version 1)
Quarter: 2016Q4

REPORT INFORMATION
  Report Type: Spontaneous
  Country: AU (occurrence: AU)
  Receive Date: 20161031
  Receipt Date: 20161031
  Transmission Date: 20170207
  Serious: Yes (Other)
  Sender: FDA-Public Use
  Company Number: AU-REGENERON PHARMACEUTICALS, INC.-2016-23319

PATIENT

DRUGS (4)
  1. AFLIBERCEPT IAI [Suspect]
     Active Substance: AFLIBERCEPT
     Indication: MACULAR DEGENERATION
     Dosage: MONTHLY
     Route: 031
     Dates: start: 201303
  2. CYCLOSPORINE. [Concomitant]
     Active Substance: CYCLOSPORINE
     Indication: PRODUCT USED FOR UNKNOWN INDICATION
     Dosage: DROPS
  3. AFLIBERCEPT IAI [Suspect]
     Active Substance: AFLIBERCEPT
     Dosage: TREATMENT RESUMED - MONTHLY
     Route: 031
     Dates: start: 201309
  4. AFLIBERCEPT IAI [Suspect]
     Active Substance: AFLIBERCEPT
     Dosage: LAST AFLIBERCEPT DOSAGE PRIOR TO EVENT
     Route: 031
     Dates: start: 20130604, end: 20130604

REACTIONS (2)
  - Scleral degeneration [Recovered/Resolved]
  - Wound dehiscence [Unknown]

NARRATIVE: CASE EVENT DATE: 201306
